FAERS Safety Report 5656222-5 (Version None)
Quarter: 2008Q1

REPORT INFORMATION
  Report Type: 
  Country: None (occurrence: None)
  Receive Date: 20080305
  Receipt Date: 20080304
  Transmission Date: 20080703
  Serious: Yes (Death)
  Sender: FDA-Public Use
  Company Number: 2008EN000028

PATIENT
  Sex: Female

DRUGS (1)
  1. ABELCET [Suspect]
     Indication: PYREXIA
     Dosage: ; IV
     Route: 042

REACTIONS (1)
  - DEATH [None]
